FAERS Safety Report 10729192 (Version 1)
Quarter: 2015Q1

REPORT INFORMATION
  Report Type: Spontaneous
  Country: US (occurrence: None)
  Receive Date: 20150120
  Receipt Date: 20150120
  Transmission Date: 20150721
  Serious: Yes (Life-Threatening, Hospitalization, Disabling)
  Sender: FDA-Public Use
  Company Number: None

PATIENT
  Age: 73 Year
  Sex: Female
  Weight: 102.51 kg

DRUGS (3)
  1. CELEBREX [Suspect]
     Active Substance: CELECOXIB
     Indication: BACK PAIN
     Dosage: 1 PILL?TWICE DAILY?TAKEN BY MOUTH
     Route: 048
     Dates: start: 20141001, end: 20141219
  2. BELVIQ [Suspect]
     Active Substance: LORCASERIN HYDROCHLORIDE
     Indication: BACK PAIN
     Dosage: 1 PILL?TWICE DAILY?TAKEN BY MOUTH
     Route: 048
     Dates: start: 20141209, end: 20141219
  3. BELVIQ [Suspect]
     Active Substance: LORCASERIN HYDROCHLORIDE
     Indication: WEIGHT CONTROL
     Dosage: 1 PILL?TWICE DAILY?TAKEN BY MOUTH
     Route: 048
     Dates: start: 20141209, end: 20141219

REACTIONS (1)
  - Myocardial infarction [None]

NARRATIVE: CASE EVENT DATE: 20150120
